FAERS Safety Report 9729536 (Version 2)
Quarter: 2013Q4

REPORT INFORMATION
  Report Type: Spontaneous
  Country: US (occurrence: US)
  Receive Date: 20131204
  Receipt Date: 20131204
  Transmission Date: 20140711
  Serious: No
  Sender: FDA-Public Use
  Company Number: US-GILEAD-2009-0021519

PATIENT
  Sex: Female
  Weight: 54.88 kg

DRUGS (10)
  1. LETAIRIS [Suspect]
     Indication: PULMONARY ARTERIAL HYPERTENSION
     Route: 048
     Dates: start: 20090401
  2. REMODULIN [Concomitant]
  3. REVATIO [Concomitant]
  4. COUMADIN [Concomitant]
  5. OXYGEN [Concomitant]
  6. PHENERGAN [Concomitant]
  7. PERCOCET 5 [Concomitant]
  8. NORMAL SALINE FLUSH [Concomitant]
  9. STERILE WATER [Concomitant]
  10. LOMOTIL [Concomitant]

REACTIONS (2)
  - Urticaria [Unknown]
  - Rash [Unknown]
